FAERS Safety Report 21082765 (Version 2)
Quarter: 2024Q3

REPORT INFORMATION
  Report Type: Report from Study
  Country: MX (occurrence: MX)
  Receive Date: 20220714
  Receipt Date: 20240820
  Transmission Date: 20241017
  Serious: Yes (Other)
  Sender: NOVARTIS
  Company Number: MX-NOVARTISPH-NVSC2022MX081333

PATIENT
  Age: 31 Year
  Sex: Male
  Weight: 90 kg

DRUGS (3)
  1. VOTRIENT [Suspect]
     Active Substance: PAZOPANIB HYDROCHLORIDE
     Indication: Synovial sarcoma
     Dosage: 2 DOSAGE FORM (400 MG), QD
     Route: 048
     Dates: start: 202201, end: 20220228
  2. VOTRIENT [Suspect]
     Active Substance: PAZOPANIB HYDROCHLORIDE
     Dosage: 2 DOSAGE FORM (400 MG), QD
     Route: 048
     Dates: start: 202202
  3. VOTRIENT [Suspect]
     Active Substance: PAZOPANIB HYDROCHLORIDE
     Dosage: UNK UNK, QD
     Route: 048

REACTIONS (2)
  - Anal fistula [Recovered/Resolved]
  - Off label use [Unknown]

NARRATIVE: CASE EVENT DATE: 20220201
